FAERS Safety Report 25606721 (Version 1)
Quarter: 2025Q3

REPORT INFORMATION
  Report Type: Spontaneous
  Country: TR (occurrence: TR)
  Receive Date: 20250725
  Receipt Date: 20250725
  Transmission Date: 20251020
  Serious: Yes (Death)
  Sender: ADMA BIOLOGICS
  Company Number: TR-ADMA BIOLOGICS INC.-TR-2025ADM000224

PATIENT
  Age: 58 Year
  Sex: Male

DRUGS (21)
  1. HUMAN IMMUNOGLOBULIN G [Suspect]
     Active Substance: HUMAN IMMUNOGLOBULIN G
     Indication: Stevens-Johnson syndrome
     Dosage: 0.4 GRAM PER KILOGRAM, QD
     Route: 042
     Dates: start: 2024, end: 2024
  2. HUMAN IMMUNOGLOBULIN G [Suspect]
     Active Substance: HUMAN IMMUNOGLOBULIN G
     Indication: Toxic epidermal necrolysis
  3. MATREX [Concomitant]
     Indication: Central nervous system lymphoma
     Dosage: 3000 MG/M2, QD, 1 CYCLE
     Route: 065
     Dates: start: 20240902, end: 20240902
  4. MATREX [Concomitant]
     Dosage: 3000 MG/M2, QD, 2 CYCLE
     Route: 065
     Dates: start: 20240930, end: 20240930
  5. MATREX [Concomitant]
     Dosage: 12 MG, QD, 4 DOSES
     Route: 037
     Dates: start: 2024, end: 20241003
  6. CYTARABINE [Concomitant]
     Active Substance: CYTARABINE
     Indication: Central nervous system lymphoma
     Dosage: 1000 MG/M2, QD, CYCLE 1
     Route: 065
     Dates: start: 20240902, end: 20240902
  7. CYTARABINE [Concomitant]
     Active Substance: CYTARABINE
     Dosage: 1000 MG/M2, QD, CYCLE 2
     Route: 065
     Dates: start: 20240930, end: 20240930
  8. CYTARABINE [Concomitant]
     Active Substance: CYTARABINE
     Dosage: 100 MG, QD
     Route: 065
     Dates: start: 2024, end: 20241003
  9. RITUXIMAB [Concomitant]
     Active Substance: RITUXIMAB
     Indication: Central nervous system lymphoma
     Dosage: 375 MG/M2, QD, CYCLE 1
     Route: 065
     Dates: start: 20240902, end: 20240902
  10. RITUXIMAB [Concomitant]
     Active Substance: RITUXIMAB
     Dosage: 375 MG/M2, QD, CYCLE 2
     Route: 065
     Dates: start: 20240930, end: 20240930
  11. CEFOPERAZONE SODIUM\SULBACTAM SODIUM [Concomitant]
     Active Substance: CEFOPERAZONE SODIUM\SULBACTAM SODIUM
     Indication: Rash erythematous
     Route: 065
     Dates: start: 2024, end: 2024
  12. MICAFUNGIN [Concomitant]
     Active Substance: MICAFUNGIN SODIUM
     Indication: Rash erythematous
     Route: 065
     Dates: start: 2024, end: 2024
  13. PREDNISOLONE [Concomitant]
     Active Substance: PREDNISOLONE
     Indication: Rash
     Route: 065
     Dates: start: 2024, end: 2024
  14. PREDNISOLONE [Concomitant]
     Active Substance: PREDNISOLONE
     Indication: Stevens-Johnson syndrome
     Route: 065
     Dates: start: 2024, end: 2024
  15. PREDNISOLONE [Concomitant]
     Active Substance: PREDNISOLONE
     Indication: Toxic epidermal necrolysis
  16. MEROPENEM [Concomitant]
     Active Substance: MEROPENEM
     Indication: Stevens-Johnson syndrome
     Route: 065
     Dates: start: 2024, end: 2024
  17. MEROPENEM [Concomitant]
     Active Substance: MEROPENEM
     Indication: Toxic epidermal necrolysis
  18. DAPTOMYCIN [Concomitant]
     Active Substance: DAPTOMYCIN
     Indication: Toxic epidermal necrolysis
     Route: 065
     Dates: start: 2024, end: 2024
  19. DAPTOMYCIN [Concomitant]
     Active Substance: DAPTOMYCIN
     Indication: Stevens-Johnson syndrome
  20. TACROLIMUS [Concomitant]
     Active Substance: TACROLIMUS
     Indication: Stevens-Johnson syndrome
     Route: 042
     Dates: start: 2024, end: 2024
  21. TACROLIMUS [Concomitant]
     Active Substance: TACROLIMUS
     Indication: Toxic epidermal necrolysis

REACTIONS (2)
  - Multiple organ dysfunction syndrome [Fatal]
  - Off label use [Unknown]

NARRATIVE: CASE EVENT DATE: 20240101
